FAERS Safety Report 25272833 (Version 1)
Quarter: 2025Q2

REPORT INFORMATION
  Report Type: Other
  Country: IT (occurrence: IT)
  Receive Date: 20250506
  Receipt Date: 20250506
  Transmission Date: 20250716
  Serious: Yes (Hospitalization, Other)
  Sender: LEPU PHARMACEUTICAL TECHNOLOGY CO., LTD.
  Company Number: IT-Lepu Pharmaceutical Technology Co., Ltd.-2176240

PATIENT
  Age: 62 Year
  Sex: Male

DRUGS (8)
  1. ATORVASTATIN CALCIUM [Suspect]
     Active Substance: ATORVASTATIN CALCIUM
     Indication: Dyslipidaemia
  2. EZETIMIBE AND SIMVASTATIN [Suspect]
     Active Substance: EZETIMIBE\SIMVASTATIN
  3. OMEPRAZOLE [Concomitant]
     Active Substance: OMEPRAZOLE
  4. TICAGRELOR [Concomitant]
     Active Substance: TICAGRELOR
  5. FUROSEMIDE [Concomitant]
     Active Substance: FUROSEMIDE
  6. ASPIRIN [Concomitant]
     Active Substance: ASPIRIN
  7. BISOPROLOL. [Concomitant]
  8. RAMIPRIL [Concomitant]
     Active Substance: RAMIPRIL

REACTIONS (3)
  - Hyponatraemia [Recovering/Resolving]
  - Rhabdomyolysis [Recovering/Resolving]
  - Hepatitis cholestatic [Recovering/Resolving]
